FAERS Safety Report 14776947 (Version 2)
Quarter: 2018Q3

REPORT INFORMATION
  Report Type: Spontaneous
  Country: GB (occurrence: GB)
  Receive Date: 20180419
  Receipt Date: 20180704
  Transmission Date: 20181010
  Serious: Yes (Disabling)
  Sender: FDA-Public Use
  Company Number: GB-009507513-1804GBR007110

PATIENT
  Age: 73 Year
  Sex: Male
  Weight: 104 kg

DRUGS (15)
  1. MONOMIL XL [Concomitant]
     Active Substance: ISOSORBIDE MONONITRATE
     Dosage: EACH MORNING
     Dates: start: 20171017
  2. AMLODIPINE [Concomitant]
     Active Substance: AMLODIPINE BESYLATE
     Dates: start: 20171017
  3. CLENIL MODULITE [Concomitant]
     Active Substance: BECLOMETHASONE DIPROPIONATE
     Dosage: PUFFS
     Route: 055
     Dates: start: 20171030
  4. RANITIDINE. [Concomitant]
     Active Substance: RANITIDINE
     Dates: start: 20171017
  5. NITROGLYCERIN. [Concomitant]
     Active Substance: NITROGLYCERIN
     Dosage: AS NECESSARY
     Dates: start: 20171017
  6. ASPIRIN. [Concomitant]
     Active Substance: ASPIRIN
     Dosage: IN THE MORNING
     Dates: start: 20171017
  7. BETAMETHASONE SODIUM PHOSPHATE [Concomitant]
     Active Substance: BETAMETHASONE SODIUM PHOSPHATE
     Dosage: USE AS DIRECTED
     Dates: start: 20180301, end: 20180308
  8. ATORVASTATIN [Concomitant]
     Active Substance: ATORVASTATIN
     Dosage: AT NIGHT
     Dates: start: 20171017
  9. FLIXONASE [Concomitant]
     Active Substance: FLUTICASONE PROPIONATE
     Dosage: AS DIRECTED
     Dates: start: 20171017
  10. VENTOLIN [Concomitant]
     Active Substance: ALBUTEROL SULFATE
     Dosage: 1 ?2 PUFFS FOUR TIMES A DAY ; AS NECESSARY
     Dates: start: 20171017
  11. GLICLAZIDE [Concomitant]
     Active Substance: GLICLAZIDE
     Dates: start: 20171017
  12. LOSARTAN POTASSIUM. [Suspect]
     Active Substance: LOSARTAN POTASSIUM
     Route: 048
     Dates: start: 20170731
  13. ACETAMINOPHEN. [Concomitant]
     Active Substance: ACETAMINOPHEN
     Dosage: 1?2 FOUR TIMES DAILY ; AS NECESSARY
     Dates: start: 20171017
  14. SUKKARTO [Concomitant]
     Active Substance: METFORMIN HYDROCHLORIDE
     Dosage: WITH MAIN MEAL
     Dates: start: 20171017
  15. PAROXETINE. [Concomitant]
     Active Substance: PAROXETINE
     Dosage: IN THE MORNING
     Dates: start: 20171017

REACTIONS (3)
  - Lip swelling [Recovered/Resolved]
  - Paraesthesia oral [Recovered/Resolved]
  - Oral pain [Recovered/Resolved]

NARRATIVE: CASE EVENT DATE: 20170731
